FAERS Safety Report 20408982 (Version 1)
Quarter: 2022Q1

REPORT INFORMATION
  Report Type: Spontaneous
  Country: GR (occurrence: GR)
  Receive Date: 20220201
  Receipt Date: 20220201
  Transmission Date: 20220423
  Serious: Yes (Other)
  Sender: FDA-Public Use
  Company Number: GR-AMGEN-GRCSP2022013759

PATIENT
  Age: 51 Year
  Sex: Male
  Weight: 64 kg

DRUGS (22)
  1. FILGRASTIM [Suspect]
     Active Substance: FILGRASTIM
     Indication: Prophylaxis
     Route: 065
  2. OLAPARIB [Concomitant]
     Active Substance: OLAPARIB
     Indication: Colorectal adenocarcinoma
     Dosage: UNK
     Dates: start: 202104
  3. OLAPARIB [Concomitant]
     Active Substance: OLAPARIB
     Indication: Metastases to liver
  4. IRINOTECAN [Concomitant]
     Active Substance: IRINOTECAN
     Indication: Colorectal adenocarcinoma
     Dosage: UNK
     Dates: start: 202104
  5. IRINOTECAN [Concomitant]
     Active Substance: IRINOTECAN
     Indication: Metastases to liver
  6. PEMBROLIZUMAB [Concomitant]
     Active Substance: PEMBROLIZUMAB
     Indication: Colorectal adenocarcinoma
     Dosage: UNK
     Dates: start: 202104, end: 202105
  7. PEMBROLIZUMAB [Concomitant]
     Active Substance: PEMBROLIZUMAB
     Indication: Metastases to liver
  8. REGORAFENIB [Concomitant]
     Active Substance: REGORAFENIB
     Indication: Colorectal adenocarcinoma
     Dosage: UNK
     Dates: start: 202104, end: 202105
  9. REGORAFENIB [Concomitant]
     Active Substance: REGORAFENIB
     Indication: Metastases to liver
  10. LANSOPRAZOLE [Concomitant]
     Active Substance: LANSOPRAZOLE
     Dosage: 30 MILLIGRAM, QD
     Route: 048
  11. DEXAMETHASONE [Concomitant]
     Active Substance: DEXAMETHASONE
     Dosage: 4 MILLIGRAM, QD
  12. FENTANYL [Concomitant]
     Active Substance: FENTANYL
     Dosage: 12 MICROGRAM/HRS
     Route: 062
  13. IPRATROPIUM [Concomitant]
     Active Substance: IPRATROPIUM
  14. BUDESONIDE [Concomitant]
     Active Substance: BUDESONIDE
  15. METOPROLOL [Concomitant]
     Active Substance: METOPROLOL
     Dosage: 50 MILLIGRAM, BID
  16. LEVOTHYROXINE [Concomitant]
     Active Substance: LEVOTHYROXINE
     Dosage: 12 MICROGRAM, BID
  17. ACETAMINOPHEN\CODEINE PHOSPHATE [Concomitant]
     Active Substance: ACETAMINOPHEN\CODEINE PHOSPHATE
     Dosage: AS NEEDED
  18. CAFFEINE [Concomitant]
     Active Substance: CAFFEINE
  19. METOCLOPRAMIDE [Concomitant]
     Active Substance: METOCLOPRAMIDE
  20. PARAFFIN OIL [Concomitant]
  21. MIRTAZAPINE [Concomitant]
     Active Substance: MIRTAZAPINE
     Dosage: 15 MILLIGRAM, QD
  22. GRANISETRON [Concomitant]
     Active Substance: GRANISETRON

REACTIONS (2)
  - Colorectal adenocarcinoma [Unknown]
  - Nausea [Unknown]

NARRATIVE: CASE EVENT DATE: 20210101
